FAERS Safety Report 5239207-2 (Version None)
Quarter: 2007Q1

REPORT INFORMATION
  Report Type: 
  Country: None (occurrence: None)
  Receive Date: 20070212
  Receipt Date: 20070125
  Transmission Date: 20070707
  Serious: Yes (Other)
  Sender: FDA-Public Use
  Company Number: 235582

PATIENT
  Age: 75 Year
  Sex: Female

DRUGS (19)
  1. LUCENTIS(RANIBIZUMAB) PWDER + SOLVENT, INJECTION SOLN [Suspect]
     Indication: MACULAR DEGENERATION
     Dosage: 93 MG,  INTRAVITREAL
     Route: 050
     Dates: start: 20061229
  2. TETRACAINE(TETRACAINE) [Suspect]
     Indication: DRUG USE FOR UNKNOWN INDICATION
     Dosage: GTT, OPHTHALMIC
     Route: 047
  3. TOBREX [Suspect]
     Indication: DRUG USE FOR UNKNOWN INDICATION
     Dosage: GTT, OPHTHALMIC
     Route: 047
  4. OXYBUPROCAINE(BENOXINATE HYDROCHLORIDE) [Suspect]
     Indication: DRUG USE FOR UNKNOWN INDICATION
     Dosage: GTT, OPHTHALMIC
     Route: 047
  5. IOPIDINE [Suspect]
     Indication: DRUG USE FOR UNKNOWN INDICATION
     Dosage: GTT, OPHTHALMIC
     Route: 047
  6. BETADINE [Suspect]
     Indication: DRUG USE FOR UNKNOWN INDICATION
  7. SODIUM HYPOCHLORITE(SODIUM HYPOCHLORITE) [Suspect]
     Indication: DRUG USE FOR UNKNOWN INDICATION
  8. NOVONORM (REPAGLINIDE) [Concomitant]
  9. LIPANOR (CIPROFIBRATE) [Concomitant]
  10. FOSAMAX [Concomitant]
  11. ACECLOFENAC (ACECLOFENAC) [Concomitant]
  12. VOLTAREN EMULGEL (DICLOFENAC DIETHYLAMMONIUM SALT) [Concomitant]
  13. DAFALGAN (ACETAMINOPHEN) [Concomitant]
  14. LORAZEPAM [Concomitant]
  15. ATENOLOL [Concomitant]
  16. VASTAREL (TRIMETAZIDINE) [Concomitant]
  17. EUPHYTOSE (BALLOTA, CAFFEINE, CRATEGUS, KOLA, PASSION FLOWER, VALERIAN [Concomitant]
  18. DI-ANTALVIC (ACETAMINOPHEN, PROPOXYPHENE HYDROCHLORIDE) [Concomitant]
  19. CARTEOL (CARTEOLOL HYDROCHLORIDE) [Concomitant]

REACTIONS (1)
  - TOXIC SKIN ERUPTION [None]
